FAERS Safety Report 21515481 (Version 1)
Quarter: 2022Q4

REPORT INFORMATION
  Report Type: Spontaneous
  Country: US (occurrence: None)
  Receive Date: 20221027
  Receipt Date: 20221027
  Transmission Date: 20230112
  Serious: Yes (Disabling)
  Sender: FDA-Public Use
  Company Number: None

PATIENT
  Age: 73 Year
  Sex: Female
  Weight: 54 kg

DRUGS (9)
  1. ATORVASTATIN [Suspect]
     Active Substance: ATORVASTATIN
     Indication: Cerebrovascular accident
     Dosage: FREQUENCY : AT BEDTIME;?
     Route: 048
     Dates: start: 20220901
  2. ASPIRIN [Concomitant]
     Active Substance: ASPIRIN
  3. ATORVASTATIN [Concomitant]
     Active Substance: ATORVASTATIN
  4. VITAMIN E [Concomitant]
     Active Substance: .ALPHA.-TOCOPHEROL
  5. VITAMIN B [Concomitant]
     Active Substance: VITAMIN B
  6. VITAMIN C [Concomitant]
     Active Substance: ASCORBIC ACID
  7. VITAMIN D3 [Concomitant]
     Active Substance: CHOLECALCIFEROL
  8. MINERALS\VITAMINS [Concomitant]
     Active Substance: MINERALS\VITAMINS
  9. FISH OIL [Concomitant]
     Active Substance: FISH OIL

REACTIONS (9)
  - Cerebrovascular accident [None]
  - Balance disorder [None]
  - Dizziness [None]
  - Weight decreased [None]
  - Fatigue [None]
  - Nausea [None]
  - Amnesia [None]
  - Confusional state [None]
  - Paraesthesia [None]

NARRATIVE: CASE EVENT DATE: 20220901
